FAERS Safety Report 13140383 (Version 3)
Quarter: 2017Q1

REPORT INFORMATION
  Report Type: Spontaneous
  Country: GB (occurrence: GB)
  Receive Date: 20170123
  Receipt Date: 20170203
  Transmission Date: 20170428
  Serious: Yes (Disabling)
  Sender: FDA-Public Use
  Company Number: GB-TEVA-729653ACC

PATIENT
  Sex: Female

DRUGS (2)
  1. COPAXONE [Suspect]
     Active Substance: GLATIRAMER ACETATE
     Dosage: 20 MILLIGRAM/MILLILITERS DAILY; UNKNOWN DOSAGE
     Route: 058
     Dates: start: 20090622
  2. FLUTICASONE. [Concomitant]
     Active Substance: FLUTICASONE
     Route: 045

REACTIONS (3)
  - Disability [Recovering/Resolving]
  - Injection site reaction [Recovering/Resolving]
  - Injection site induration [Recovering/Resolving]
